FAERS Safety Report 5133589-8 (Version None)
Quarter: 2006Q4

REPORT INFORMATION
  Report Type: 
  Country: None (occurrence: None)
  Receive Date: 20061024
  Receipt Date: 20061013
  Transmission Date: 20070319
  Serious: No
  Sender: FDA-Public Use
  Company Number: MX-ELI_LILLY_AND_COMPANY-MX200610002446

PATIENT
  Age: 41 Year
  Sex: Female

DRUGS (1)
  1. CYMBALTA [Suspect]
     Dosage: 60 MG, UNK
     Route: 048

REACTIONS (1)
  - HEPATITIS [None]
